FAERS Safety Report 12891162 (Version 1)
Quarter: 2016Q4

REPORT INFORMATION
  Report Type: Spontaneous
  Country: US (occurrence: US)
  Receive Date: 20161027
  Receipt Date: 20161027
  Transmission Date: 20170207
  Serious: Yes (Other)
  Sender: FDA-Public Use
  Company Number: US-AMGEN-USASP2016147646

PATIENT
  Age: 54 Year
  Sex: Male

DRUGS (1)
  1. NEUPOGEN [Suspect]
     Active Substance: FILGRASTIM
     Indication: NEUTROPENIA
     Dosage: UNK UNK, ONE TIME DOSE
     Route: 065
     Dates: start: 2015, end: 2015

REACTIONS (1)
  - Neutropenia [Not Recovered/Not Resolved]
